FAERS Safety Report 5236030-X (Version None)
Quarter: 2007Q1

REPORT INFORMATION
  Report Type: 
  Country: None (occurrence: None)
  Receive Date: 20061208
  Receipt Date: 20060610
  Transmission Date: 20070707
  Serious: Yes (Other)
  Sender: FDA-Public Use
  Company Number: 2005UW13209

PATIENT
  Age: 74 Year
  Sex: Female
  Weight: 57.6 kg

DRUGS (2)
  1. CRESTOR [Suspect]
     Indication: BLOOD CHOLESTEROL INCREASED
     Dosage: 5 MG PO
     Route: 047
     Dates: start: 20050801, end: 20060501
  2. NO MATCH [Concomitant]

REACTIONS (2)
  - PAIN IN EXTREMITY [None]
  - PRURITUS GENITAL [None]
